FAERS Safety Report 7746886-4 (Version None)
Quarter: 2011Q3

REPORT INFORMATION
  Report Type: 
  Country: None (occurrence: None)
  Receive Date: 20110908
  Receipt Date: 20110825
  Transmission Date: 20111222
  Serious: Yes (Hospitalization)
  Sender: FDA-Public Use
  Company Number: 1000023438

PATIENT
  Age: 77 Year
  Sex: Male

DRUGS (3)
  1. ARICEPT [Concomitant]
  2. MEMANTINE [Suspect]
     Indication: DEMENTIA ALZHEIMER'S TYPE
     Dosage: 5 MG (5 MG, 1 IN 1 D), ORAL
     Route: 048
     Dates: start: 20110701, end: 20110707
  3. MEMANTINE [Suspect]
     Indication: DEMENTIA ALZHEIMER'S TYPE
     Dosage: 10 MG (10 MG, 1 IN 1 D), ORAL
     Route: 048
     Dates: start: 20110708, end: 20110721

REACTIONS (5)
  - GAIT DISTURBANCE [None]
  - CONTUSION [None]
  - FALL [None]
  - BLOOD GLUCOSE DECREASED [None]
  - DYSSTASIA [None]
